FAERS Safety Report 14822575 (Version 1)
Quarter: 2018Q2

REPORT INFORMATION
  Report Type: Spontaneous
  Country: BE (occurrence: BE)
  Receive Date: 20180427
  Receipt Date: 20180427
  Transmission Date: 20180711
  Serious: Yes (Other)
  Sender: FDA-Public Use
  Company Number: BE-ELI_LILLY_AND_COMPANY-BE201804010204

PATIENT
  Age: 63 Year
  Sex: Male

DRUGS (1)
  1. TALTZ [Suspect]
     Active Substance: IXEKIZUMAB
     Indication: PRODUCT USED FOR UNKNOWN INDICATION
     Dosage: UNK UNK, UNKNOWN
     Route: 065
     Dates: start: 201802

REACTIONS (3)
  - Hair follicle tumour benign [Unknown]
  - Squamous cell carcinoma of skin [Unknown]
  - Skin lesion [Unknown]

NARRATIVE: CASE EVENT DATE: 20180328
